FAERS Safety Report 7199924-4 (Version None)
Quarter: 2010Q4

REPORT INFORMATION
  Report Type: 
  Country: None (occurrence: None)
  Receive Date: 20101228
  Receipt Date: 20101129
  Transmission Date: 20110411
  Serious: No
  Sender: FDA-Public Use
  Company Number: US-PFIZER INC-2007084859

PATIENT
  Sex: Female
  Weight: 75 kg

DRUGS (5)
  1. LIPITOR [Suspect]
     Dosage: UNK
     Route: 048
  2. CHANTIX [Suspect]
     Indication: SMOKING CESSATION THERAPY
     Dosage: 1 MG, 2X/DAY
     Route: 048
     Dates: start: 20070921, end: 20071003
  3. LASIX [Concomitant]
     Dosage: UNK
     Route: 048
  4. TIAZAC [Concomitant]
     Dosage: UNK
     Route: 048
  5. WARFARIN SODIUM [Concomitant]
     Dosage: UNK

REACTIONS (3)
  - ASTHENIA [None]
  - JOINT SWELLING [None]
  - MYALGIA [None]
